FAERS Safety Report 11266391 (Version 1)
Quarter: 2015Q3

REPORT INFORMATION
  Report Type: Spontaneous
  Country: US (occurrence: US)
  Receive Date: 20150713
  Receipt Date: 20150713
  Transmission Date: 20151125
  Serious: No
  Sender: FDA-Public Use
  Company Number: US-HORIZON-RAV-0040-2015

PATIENT
  Age: 5 Year
  Sex: Male

DRUGS (1)
  1. RAVICTI [Suspect]
     Active Substance: GLYCEROL PHENYLBUTYRATE
     Indication: UREA CYCLE ENZYME DEFICIENCY
     Dosage: 2.6 ML 4 TIMES A DAY, INCREASED TO 3 ML 4 TIMES A DAY

REACTIONS (4)
  - Aggression [Recovered/Resolved]
  - Nausea [Recovered/Resolved]
  - Off label use [Unknown]
  - Ammonia increased [Recovered/Resolved]

NARRATIVE: CASE EVENT DATE: 201507
